FAERS Safety Report 4841947-1 (Version None)
Quarter: 2005Q4

REPORT INFORMATION
  Report Type: 
  Country: None (occurrence: None)
  Receive Date: 20051130
  Receipt Date: 20051010
  Transmission Date: 20060501
  Serious: No
  Sender: FDA-Public Use
  Company Number: US-GLAXOSMITHKLINE-A0577714A

PATIENT
  Age: 50 Year
  Sex: Male

DRUGS (4)
  1. WELLBUTRIN XL [Suspect]
     Indication: STRESS
     Dosage: 150MG PER DAY
     Route: 048
  2. ZOCOR [Concomitant]
  3. PREVACID [Concomitant]
  4. ASPIRIN [Concomitant]

REACTIONS (3)
  - PHARYNGOLARYNGEAL PAIN [None]
  - RHINORRHOEA [None]
  - TREMOR [None]
